FAERS Safety Report 10631050 (Version 3)
Quarter: 2015Q1

REPORT INFORMATION
  Report Type: Spontaneous
  Country: US (occurrence: US)
  Receive Date: 20141205
  Receipt Date: 20150210
  Transmission Date: 20150720
  Serious: No
  Sender: FDA-Public Use
  Company Number: US-PFIZER INC-2014334076

PATIENT
  Age: 47 Year
  Sex: Female

DRUGS (1)
  1. LYRICA [Suspect]
     Active Substance: PREGABALIN
     Indication: FIBROMYALGIA
     Dosage: 150 MG, 3X/DAY  (1 CAPSULE EVERY 8 HOURS)
     Route: 048
     Dates: start: 20141202, end: 201412

REACTIONS (3)
  - Fibromyalgia [Unknown]
  - Impaired work ability [Unknown]
  - Disease progression [Unknown]
